FAERS Safety Report 13682064 (Version 1)
Quarter: 2017Q2

REPORT INFORMATION
  Report Type: Spontaneous
  Country: US (occurrence: US)
  Receive Date: 20170623
  Receipt Date: 20170623
  Transmission Date: 20170830
  Serious: No
  Sender: FDA-Public Use
  Company Number: US-BAUSCH-BL-2017-010396

PATIENT
  Age: 89 Year
  Sex: Female
  Weight: 88.53 kg

DRUGS (2)
  1. JUBLIA [Suspect]
     Active Substance: EFINACONAZOLE
     Dosage: SQUIRTED A LOAD OF PRODUCT TO THE LEFT BIG TOE
     Route: 061
     Dates: start: 20170416
  2. JUBLIA [Suspect]
     Active Substance: EFINACONAZOLE
     Indication: ONYCHOMYCOSIS
     Dosage: TO THE LEFT BIG TOE
     Route: 061
     Dates: start: 2016

REACTIONS (3)
  - Dyspnoea [Recovered/Resolved]
  - Pain in extremity [Unknown]
  - Incorrect dose administered [Unknown]

NARRATIVE: CASE EVENT DATE: 20170416
